FAERS Safety Report 20361753 (Version 1)
Quarter: 2022Q1

REPORT INFORMATION
  Report Type: Spontaneous
  Country: US (occurrence: US)
  Receive Date: 20220121
  Receipt Date: 20220121
  Transmission Date: 20220423
  Serious: No
  Sender: FDA-Public Use
  Company Number: US-JNJFOC-20220120117

PATIENT
  Sex: Male

DRUGS (2)
  1. MINOXIDIL [Suspect]
     Active Substance: MINOXIDIL
     Indication: Product used for unknown indication
     Route: 065
  2. KETOCONAZOLE [Concomitant]
     Active Substance: KETOCONAZOLE
     Indication: Product used for unknown indication
     Route: 065

REACTIONS (7)
  - Application site pruritus [Unknown]
  - Application site swelling [Unknown]
  - Ear pruritus [Unknown]
  - Pruritus [Unknown]
  - Ear swelling [Unknown]
  - Periorbital swelling [Unknown]
  - Contraindicated product administered [Unknown]
